FAERS Safety Report 6340998-8 (Version None)
Quarter: 2009Q3

REPORT INFORMATION
  Report Type: 
  Country: None (occurrence: None)
  Receive Date: 20090904
  Receipt Date: 20090831
  Transmission Date: 20100115
  Serious: Yes (Hospitalization, Congenital Anomaly)
  Sender: FDA-Public Use
  Company Number: A0683123A

PATIENT
  Sex: Male

DRUGS (2)
  1. PAXIL [Suspect]
     Indication: DEPRESSION
     Dates: start: 19980324
  2. ANTIBIOTICS [Concomitant]

REACTIONS (7)
  - CARDIAC DISORDER [None]
  - CONVULSION [None]
  - DRUG EXPOSURE DURING PREGNANCY [None]
  - EATING DISORDER [None]
  - ELECTROENCEPHALOGRAM ABNORMAL [None]
  - EXOMPHALOS [None]
  - RESPIRATORY DISTRESS [None]
